FAERS Safety Report 4930109-5 (Version None)
Quarter: 2006Q1

REPORT INFORMATION
  Report Type: 
  Country: None (occurrence: None)
  Receive Date: 20060228
  Receipt Date: 20060228
  Transmission Date: 20060701
  Serious: Yes (Other)
  Sender: FDA-Public Use
  Company Number: None

PATIENT
  Sex: Female
  Weight: 81.1939 kg

DRUGS (12)
  1. METOCLOPRAMIDE [Suspect]
     Indication: IMPAIRED GASTRIC EMPTYING
     Dosage: 5 MG PO QAC +QHS
     Route: 048
  2. PROTONIX [Concomitant]
  3. AZMALOFT MDI [Concomitant]
  4. FORADIL [Concomitant]
  5. ALLOPURINOL [Concomitant]
  6. STARLIX [Concomitant]
  7. SYNTHROID [Concomitant]
  8. NORVASC [Concomitant]
  9. FUROSEMIDE [Concomitant]
  10. ATROVENT NEBS [Concomitant]
  11. AVAPRO [Concomitant]
  12. ATENOLOL [Concomitant]

REACTIONS (2)
  - DISORIENTATION [None]
  - DROOLING [None]
